FAERS Safety Report 12600243 (Version 6)
Quarter: 2017Q4

REPORT INFORMATION
  Report Type: Report from Study
  Country: US (occurrence: US)
  Receive Date: 20160727
  Receipt Date: 20171223
  Transmission Date: 20180320
  Serious: No
  Sender: FDA-Public Use
  Company Number: PHEH2016US018380

PATIENT
  Age: 65 Year
  Sex: Female

DRUGS (3)
  1. COSENTYX [Suspect]
     Active Substance: SECUKINUMAB
     Indication: PSORIASIS
     Dosage: 300 MG, QW
     Route: 058
     Dates: start: 20160624
  2. COSENTYX [Suspect]
     Active Substance: SECUKINUMAB
     Dosage: 300 MG, QMO
     Route: 058
     Dates: start: 20160808
  3. COSENTYX [Suspect]
     Active Substance: SECUKINUMAB
     Dosage: 300 MG (150 X 2 PENS), QMO
     Route: 058
     Dates: start: 20170923

REACTIONS (7)
  - Condition aggravated [Not Recovered/Not Resolved]
  - Psoriasis [Unknown]
  - Injection site erythema [Recovered/Resolved]
  - Influenza [Unknown]
  - Injection site haemorrhage [Recovered/Resolved]
  - Upper respiratory tract infection [Unknown]
  - Pruritus [Not Recovered/Not Resolved]

NARRATIVE: CASE EVENT DATE: 20160712
